FAERS Safety Report 24867018 (Version 4)
Quarter: 2025Q4

REPORT INFORMATION
  Report Type: Report from Study
  Country: GB (occurrence: GB)
  Receive Date: 20250121
  Receipt Date: 20251211
  Transmission Date: 20260118
  Serious: Yes (Other)
  Sender: NOVARTIS
  Company Number: GB-002147023-NVSC2025GB009060

PATIENT
  Sex: Female

DRUGS (2)
  1. MAYZENT [Suspect]
     Active Substance: SIPONIMOD
     Indication: Secondary progressive multiple sclerosis
     Dosage: 1 MG, QD (28 TABLET 2 X 14 TABLETS)
     Route: 048
     Dates: start: 20231109
  2. MAYZENT [Suspect]
     Active Substance: SIPONIMOD
     Indication: Multiple sclerosis

REACTIONS (6)
  - Nephrolithiasis [Not Recovered/Not Resolved]
  - Lymphocyte count decreased [Not Recovered/Not Resolved]
  - Urinary tract infection [Not Recovered/Not Resolved]
  - Mobility decreased [Unknown]
  - Balance disorder [Unknown]
  - Product distribution issue [Unknown]
